FAERS Safety Report 13051484 (Version 1)
Quarter: 2016Q4

REPORT INFORMATION
  Report Type: Spontaneous
  Country: US (occurrence: US)
  Receive Date: 20161221
  Receipt Date: 20161221
  Transmission Date: 20170207
  Serious: No
  Sender: FDA-Public Use
  Company Number: US-NOVOPROD-481981

PATIENT
  Age: 66 Year
  Sex: Female

DRUGS (1)
  1. LEVEMIR [Suspect]
     Active Substance: INSULIN DETEMIR
     Indication: TYPE 2 DIABETES MELLITUS
     Route: 058

REACTIONS (6)
  - Injection site bruising [Recovered/Resolved]
  - Blood glucose increased [Not Recovered/Not Resolved]
  - Injection site inflammation [Recovered/Resolved]
  - Pain [Recovered/Resolved]
  - Product quality issue [Recovered/Resolved]
  - Injection site pruritus [Recovered/Resolved]
